FAERS Safety Report 6322105-0 (Version None)
Quarter: 2009Q3

REPORT INFORMATION
  Report Type: 
  Country: None (occurrence: None)
  Receive Date: 20090821
  Receipt Date: 20090821
  Transmission Date: 20100115
  Serious: Yes (Other)
  Sender: FDA-Public Use
  Company Number: None

PATIENT
  Age: 2 Year
  Sex: Male
  Weight: 12.7007 kg

DRUGS (1)
  1. SINGULAIR [Suspect]
     Indication: MULTIPLE ALLERGIES
     Dosage: 4MG NIGHTLY PO
     Route: 048
     Dates: start: 20090703, end: 20090817

REACTIONS (12)
  - ABNORMAL BEHAVIOUR [None]
  - ABNORMAL DREAMS [None]
  - AGGRESSION [None]
  - CRYING [None]
  - FORMICATION [None]
  - HALLUCINATION [None]
  - HEART RATE INCREASED [None]
  - MIDDLE INSOMNIA [None]
  - MYDRIASIS [None]
  - NERVOUSNESS [None]
  - SCREAMING [None]
  - SLEEP TALKING [None]
